FAERS Safety Report 24210014 (Version 3)
Quarter: 2025Q3

REPORT INFORMATION
  Report Type: Spontaneous
  Country: IN (occurrence: IN)
  Receive Date: 20240814
  Receipt Date: 20250822
  Transmission Date: 20251021
  Serious: Yes (Death, Life-Threatening)
  Sender: PFIZER
  Company Number: IN-MLMSERVICE-20240805-PI152413-00306-1

PATIENT
  Age: 33 Year
  Sex: Male

DRUGS (9)
  1. PREDNISOLONE [Suspect]
     Active Substance: PREDNISOLONE
     Indication: Immunosuppressant drug therapy
  2. METHYLPREDNISOLONE SODIUM SUCCINATE [Suspect]
     Active Substance: METHYLPREDNISOLONE SODIUM SUCCINATE
     Indication: Immunosuppressant drug therapy
  3. TACROLIMUS [Suspect]
     Active Substance: TACROLIMUS
     Indication: Immunosuppressant drug therapy
  4. BASILIXIMAB [Suspect]
     Active Substance: BASILIXIMAB
     Indication: Immunosuppressant drug therapy
  5. MYCOPHENOLATE MOFETIL [Suspect]
     Active Substance: MYCOPHENOLATE MOFETIL
     Indication: Immunosuppressant drug therapy
  6. SODIUM CHLORIDE [Concomitant]
     Active Substance: SODIUM CHLORIDE
     Indication: Immunosuppressant drug therapy
  7. MEROPENEM [Concomitant]
     Active Substance: MEROPENEM
     Indication: Prophylaxis
  8. SULFAMETHOXAZOLE\TRIMETHOPRIM [Concomitant]
     Active Substance: SULFAMETHOXAZOLE\TRIMETHOPRIM
     Indication: Prophylaxis
  9. TARGOCID [Concomitant]
     Active Substance: TEICOPLANIN
     Indication: Prophylaxis

REACTIONS (11)
  - Respiratory tract infection fungal [Fatal]
  - Pericardial effusion [Fatal]
  - Infective aneurysm [Fatal]
  - Cardiomegaly [Fatal]
  - Bacterial infection [Fatal]
  - Congestive hepatopathy [Fatal]
  - Pulmonary artery thrombosis [Fatal]
  - Aspergillus infection [Fatal]
  - Aortic aneurysm rupture [Fatal]
  - Circulatory collapse [Fatal]
  - Spleen congestion [Fatal]
